FAERS Safety Report 7721898-5 (Version None)
Quarter: 2011Q3

REPORT INFORMATION
  Report Type: 
  Country: None (occurrence: None)
  Receive Date: 20110831
  Receipt Date: 20110822
  Transmission Date: 20111222
  Serious: Yes (Other)
  Sender: FDA-Public Use
  Company Number: US-BAYER-2011-067678

PATIENT
  Age: 17 Year
  Sex: Female
  Weight: 90.703 kg

DRUGS (3)
  1. YAZ [Suspect]
     Dosage: UNK
     Dates: start: 20040101, end: 20090601
  2. YASMIN [Suspect]
     Dosage: UNK
     Dates: start: 20040101, end: 20090601
  3. DROSPIRENONE AND ETHINYL ESTRADIOL [Suspect]
     Dosage: UNK
     Dates: start: 20040101, end: 20090601

REACTIONS (9)
  - GALLBLADDER DISORDER [None]
  - INJURY [None]
  - PAIN [None]
  - ANXIETY [None]
  - CHOLECYSTITIS CHRONIC [None]
  - EMOTIONAL DISTRESS [None]
  - FEAR [None]
  - PSYCHIATRIC SYMPTOM [None]
  - CHOLELITHIASIS [None]
